FAERS Safety Report 7653824-1 (Version None)
Quarter: 2011Q3

REPORT INFORMATION
  Report Type: 
  Country: None (occurrence: None)
  Receive Date: 20110803
  Receipt Date: 20110727
  Transmission Date: 20111222
  Serious: Yes (Death)
  Sender: FDA-Public Use
  Company Number: JP-PFIZER INC-2011173342

PATIENT
  Age: 59 Year
  Sex: Female

DRUGS (4)
  1. PROGRAF [Concomitant]
  2. CELECOXIB [Suspect]
  3. RIMATIL [Concomitant]
  4. FOSAMAX [Concomitant]

REACTIONS (1)
  - DEATH [None]
